FAERS Safety Report 8142251-9 (Version None)
Quarter: 2012Q1

REPORT INFORMATION
  Report Type: 
  Country: None (occurrence: None)
  Receive Date: 20120103
  Receipt Date: 20110929
  Transmission Date: 20120608
  Serious: No
  Sender: FDA-Public Use
  Company Number: AE-2011-001189

PATIENT
  Age: 30 Year
  Sex: Male
  Weight: 117.4816 kg

DRUGS (6)
  1. RIBAPAK (RIBAVIRIN) [Concomitant]
  2. PEGINTERFERON (PEGINTERFERON ALFA-2A) [Concomitant]
  3. MULTIVITAMIN [Concomitant]
  4. INCIVEK [Suspect]
     Dosage: (3 IN 1 D)
     Dates: start: 20110819
  5. BENADRYL [Concomitant]
  6. ATENOLOL [Concomitant]

REACTIONS (1)
  - RASH PRURITIC [None]
